FAERS Safety Report 9931854 (Version 4)
Quarter: 2014Q3

REPORT INFORMATION
  Report Type: Report from Study
  Country: DE (occurrence: DE)
  Receive Date: 20140228
  Receipt Date: 20140716
  Transmission Date: 20150326
  Serious: Yes (Other)
  Sender: FDA-Public Use
  Company Number: DE-BEH-2014040097

PATIENT
  Age: 30 Year
  Sex: Female
  Weight: 70.2 kg

DRUGS (7)
  1. PRIVIGEN [Suspect]
     Active Substance: HUMAN IMMUNOGLOBULIN G
     Dosage: INFUSION RATE MIN. 1.67 ML/MIN
     Route: 042
     Dates: start: 20101210, end: 20101210
  2. CLEXANE 0.6 [Concomitant]
     Dosage: 0.6
  3. PRIVIGEN [Suspect]
     Active Substance: HUMAN IMMUNOGLOBULIN G
     Dosage: INFUSION RATE MIN/MAX: 1/2 ML/MIN
     Route: 042
     Dates: start: 20101021, end: 20101021
  4. PRIVIGEN [Suspect]
     Active Substance: HUMAN IMMUNOGLOBULIN G
     Indication: PROPHYLAXIS OF ABORTION
     Dosage: INFUSION RATE MIN/MAX: 1/2 ML/MIN
     Route: 042
     Dates: start: 20101104, end: 20101104
  5. ASS 100 [Concomitant]
     Active Substance: ASPIRIN
     Dates: start: 20101222
  6. DECORTIN 20 MG [Concomitant]
  7. PRIVIGEN [Suspect]
     Active Substance: HUMAN IMMUNOGLOBULIN G
     Dosage: INFUSION RATE MIN/MAX: 1/2 ML/MIN
     Route: 042
     Dates: start: 20101122, end: 20101122

REACTIONS (3)
  - Exposure during pregnancy [Recovered/Resolved]
  - Premature delivery [Unknown]
  - Drug ineffective for unapproved indication [Unknown]

NARRATIVE: CASE EVENT DATE: 20101228
